FAERS Safety Report 13289656 (Version 1)
Quarter: 2017Q1

REPORT INFORMATION
  Report Type: Report from Study
  Country: US (occurrence: US)
  Receive Date: 20170303
  Receipt Date: 20170303
  Transmission Date: 20170428
  Serious: No
  Sender: FDA-Public Use
  Company Number: US-AMGEN-USASL2017031763

PATIENT
  Age: 9 Year
  Sex: Male

DRUGS (3)
  1. MTX [Concomitant]
     Active Substance: METHOTREXATE SODIUM
     Dosage: UNK
  2. ENBREL [Suspect]
     Active Substance: ETANERCEPT
     Dosage: 40 MG, QWK
     Route: 065
     Dates: start: 201702
  3. ENBREL [Suspect]
     Active Substance: ETANERCEPT
     Indication: JUVENILE IDIOPATHIC ARTHRITIS
     Dosage: 40 MG, QWK
     Route: 065
     Dates: end: 201702

REACTIONS (3)
  - Influenza [Unknown]
  - Skin swelling [Unknown]
  - Dry skin [Unknown]

NARRATIVE: CASE EVENT DATE: 201702
